FAERS Safety Report 5206593-9 (Version None)
Quarter: 2006Q4

REPORT INFORMATION
  Report Type: 
  Country: None (occurrence: None)
  Receive Date: 20061026
  Receipt Date: 20060901
  Transmission Date: 20070319
  Serious: No
  Sender: FDA-Public Use
  Company Number: 2006107941

PATIENT
  Sex: Female

DRUGS (1)
  1. LYRICA [Suspect]
     Indication: INTERVERTEBRAL DISC PROTRUSION

REACTIONS (3)
  - DRUG INEFFECTIVE [None]
  - MASKED FACIES [None]
  - SWELLING FACE [None]
